FAERS Safety Report 13932577 (Version 4)
Quarter: 2018Q1

REPORT INFORMATION
  Report Type: Report from Study
  Country: SE (occurrence: SE)
  Receive Date: 20170904
  Receipt Date: 20180222
  Transmission Date: 20180508
  Serious: Yes (Death, Other)
  Sender: FDA-Public Use
  Company Number: SE-AUROBINDO-AUR-APL-2017-39695

PATIENT
  Age: 30 Year
  Sex: Female

DRUGS (6)
  1. ZOLPIDEM [Suspect]
     Active Substance: ZOLPIDEM\ZOLPIDEM TARTRATE
     Indication: PRODUCT USED FOR UNKNOWN INDICATION
     Route: 065
  2. LITHIUM. [Suspect]
     Active Substance: LITHIUM
     Indication: PRODUCT USED FOR UNKNOWN INDICATION
     Route: 065
  3. NORDAZEPAM [Concomitant]
     Active Substance: NORDAZEPAM
     Indication: PRODUCT USED FOR UNKNOWN INDICATION
     Route: 065
  4. NORDAZEPAM [Concomitant]
     Active Substance: NORDAZEPAM
     Dosage: ()
     Route: 065
  5. PROPIOMAZINE [Concomitant]
     Active Substance: PROPIOMAZINE
     Indication: PRODUCT USED FOR UNKNOWN INDICATION
     Route: 065
  6. PROPIOMAZINE [Concomitant]
     Active Substance: PROPIOMAZINE
     Dosage: ()
     Route: 065

REACTIONS (1)
  - Toxicity to various agents [Fatal]
